FAERS Safety Report 23255782 (Version 1)
Quarter: 2023Q4

REPORT INFORMATION
  Report Type: Report from Study
  Country: IT (occurrence: IT)
  Receive Date: 20231204
  Receipt Date: 20231204
  Transmission Date: 20240110
  Serious: Yes (Other)
  Sender: FDA-Public Use
  Company Number: None

PATIENT
  Age: 31 Year
  Sex: Female

DRUGS (4)
  1. REMICADE [Suspect]
     Active Substance: INFLIXIMAB
     Indication: Colitis ulcerative
     Route: 041
     Dates: start: 20230608, end: 20230608
  2. PREDNISONE [Concomitant]
     Active Substance: PREDNISONE
  3. MESALAMINE [Concomitant]
     Active Substance: MESALAMINE
  4. CALCITRIOL [Concomitant]
     Active Substance: CALCITRIOL
     Dosage: DOSAGGIO: 0.5UNITA DI MISURA: MILLIGRAMMI

REACTIONS (2)
  - Arthralgia [Recovering/Resolving]
  - Syncope [Recovering/Resolving]

NARRATIVE: CASE EVENT DATE: 20230608
